FAERS Safety Report 7960825-2 (Version None)
Quarter: 2011Q4

REPORT INFORMATION
  Report Type: 
  Country: None (occurrence: None)
  Receive Date: 20111207
  Receipt Date: 20111128
  Transmission Date: 20120403
  Serious: No
  Sender: FDA-Public Use
  Company Number: US-BIOGENIDEC-2011BI045154

PATIENT
  Age: 45 Year
  Sex: Female

DRUGS (2)
  1. AVONEX [Suspect]
     Indication: MULTIPLE SCLEROSIS
     Route: 030
     Dates: start: 20111019
  2. TRAMADOL HCL [Concomitant]
     Indication: BACK PAIN

REACTIONS (7)
  - BACK PAIN [None]
  - HEADACHE [None]
  - ASTHENIA [None]
  - DIZZINESS [None]
  - CHILLS [None]
  - ABDOMINAL DISCOMFORT [None]
  - PYREXIA [None]
